FAERS Safety Report 5574932-5 (Version None)
Quarter: 2007Q4

REPORT INFORMATION
  Report Type: 
  Country: None (occurrence: None)
  Receive Date: 20071227
  Receipt Date: 20071220
  Transmission Date: 20080405
  Serious: Yes (Other)
  Sender: FDA-Public Use
  Company Number: A0699984A

PATIENT
  Age: 93 Year
  Sex: Female

DRUGS (16)
  1. COREG [Suspect]
     Dosage: 6.25MG TWICE PER DAY
     Route: 048
     Dates: start: 20060101, end: 20071104
  2. CAPTOPRIL [Concomitant]
  3. DIGOXIN [Concomitant]
  4. LEVOTHYROXINE SODIUM [Concomitant]
  5. FUROSEMIDE [Concomitant]
  6. METOPROLOL [Concomitant]
  7. OMEPRAZOLE [Concomitant]
  8. TRICOR [Concomitant]
  9. ASPIRIN [Concomitant]
  10. MULTI-VITAMIN [Concomitant]
  11. DETROL [Concomitant]
  12. FERROUS SULFATE TAB [Concomitant]
  13. MULTIVITAMIN [Concomitant]
  14. SPIRONOLACTONE [Concomitant]
  15. XALATAN [Concomitant]
  16. ANTIBIOTIC [Concomitant]

REACTIONS (7)
  - CONTUSION [None]
  - FALL [None]
  - HAEMORRHAGE [None]
  - JOINT SWELLING [None]
  - OEDEMA PERIPHERAL [None]
  - URINARY TRACT INFECTION [None]
  - WHITE BLOOD CELL COUNT INCREASED [None]
